FAERS Safety Report 7230859-4 (Version None)
Quarter: 2011Q1

REPORT INFORMATION
  Report Type: 
  Country: None (occurrence: None)
  Receive Date: 20110118
  Receipt Date: 20110107
  Transmission Date: 20110831
  Serious: Yes (Death, Hospitalization)
  Sender: FDA-Public Use
  Company Number: US-ROCHE-669191

PATIENT
  Sex: Female
  Weight: 50 kg

DRUGS (7)
  1. BONIVA [Suspect]
     Dosage: IV PUSH
     Route: 042
     Dates: start: 20080326, end: 20090114
  2. DIGOXIN [Concomitant]
     Route: 048
     Dates: start: 20090324, end: 20090624
  3. EXEMESTANE [Suspect]
     Indication: BREAST CANCER
     Route: 048
     Dates: start: 20050322, end: 20090624
  4. CELEXA [Concomitant]
     Route: 048
  5. MULTI-VITAMIN [Concomitant]
     Route: 048
     Dates: start: 20090313, end: 20090624
  6. METOPROLOL [Concomitant]
     Route: 048
  7. ASPIRIN [Concomitant]
     Route: 048

REACTIONS (2)
  - CARDIAC FAILURE CONGESTIVE [None]
  - ATRIAL FIBRILLATION [None]
